FAERS Safety Report 13361618 (Version 2)
Quarter: 2017Q1

REPORT INFORMATION
  Report Type: Spontaneous
  Country: GB (occurrence: GB)
  Receive Date: 20170323
  Receipt Date: 20170330
  Transmission Date: 20170429
  Serious: Yes (Other)
  Sender: FDA-Public Use
  Company Number: GB-DEXPHARM-20170403

PATIENT
  Sex: Female

DRUGS (12)
  1. ARIPIPRAZOLE. [Suspect]
     Active Substance: ARIPIPRAZOLE
     Indication: PRODUCT USED FOR UNKNOWN INDICATION
     Route: 065
     Dates: start: 201612
  2. SANDOZ AMLODIPINE [Suspect]
     Active Substance: AMLODIPINE MALEATE
     Indication: HYPERTENSION
     Route: 065
     Dates: start: 201307
  3. ARIPIPRAZOLE. [Suspect]
     Active Substance: ARIPIPRAZOLE
     Indication: PRODUCT USED FOR UNKNOWN INDICATION
     Route: 065
     Dates: start: 201701
  4. SANDOZ LTD BISOPROLOL [Suspect]
     Active Substance: BISOPROLOL
     Indication: HYPERTENSION
     Route: 065
     Dates: start: 201611
  5. LANSOPRAZOLE. [Suspect]
     Active Substance: LANSOPRAZOLE
     Indication: PRODUCT USED FOR UNKNOWN INDICATION
     Route: 065
  6. OXPRENOLOL [Suspect]
     Active Substance: OXPRENOLOL
     Indication: PRODUCT USED FOR UNKNOWN INDICATION
     Dosage: 160 MG, UNK
     Route: 065
     Dates: end: 201301
  7. ADCAL-D3 [Concomitant]
     Active Substance: CALCIUM CARBONATE\CHOLECALCIFEROL
     Indication: PRODUCT USED FOR UNKNOWN INDICATION
     Route: 065
     Dates: start: 201402
  8. ALENDRONIC ACID [Suspect]
     Active Substance: ALENDRONIC ACID
     Indication: PRODUCT USED FOR UNKNOWN INDICATION
     Dosage: 70 MG, UNK
     Route: 065
     Dates: start: 201402
  9. SANDOZ LTD BISOPROLOL [Suspect]
     Active Substance: BISOPROLOL
     Indication: HYPERTENSION
     Dosage: 5 MG, UNK
     Route: 065
     Dates: start: 201502
  10. PROLIA [Concomitant]
     Active Substance: DENOSUMAB
     Indication: PRODUCT USED FOR UNKNOWN INDICATION
     Route: 065
     Dates: start: 201608
  11. AMITRIPTYLINE [Suspect]
     Active Substance: AMITRIPTYLINE
     Indication: PRODUCT USED FOR UNKNOWN INDICATION
     Route: 065
  12. DOXAZOSIN [Suspect]
     Active Substance: DOXAZOSIN\DOXAZOSIN MESYLATE
     Indication: HYPERTENSION
     Route: 065
     Dates: start: 1990, end: 201306

REACTIONS (18)
  - Headache [Unknown]
  - Skin discolouration [None]
  - Muscle spasms [Unknown]
  - Myalgia [Unknown]
  - Pain [Unknown]
  - Dyspnoea [None]
  - Malaise [None]
  - Constipation [Unknown]
  - Influenza like illness [Unknown]
  - Arthralgia [Unknown]
  - Abdominal discomfort [Unknown]
  - Erythema [Unknown]
  - Rhinorrhoea [Unknown]
  - Urinary tract infection [Recovering/Resolving]
  - Rectal prolapse [None]
  - Bone pain [Unknown]
  - Burning sensation [Unknown]
  - Chest discomfort [Unknown]
